FAERS Safety Report 8377110-X (Version None)
Quarter: 2012Q1

REPORT INFORMATION
  Report Type: 
  Country: None (occurrence: None)
  Receive Date: 20120323
  Receipt Date: 20110926
  Transmission Date: 20120608
  Serious: Yes (Other)
  Sender: FDA-Public Use
  Company Number: 163-21880-11032964

PATIENT
  Age: 70 Year
  Sex: Female
  Weight: 83 kg

DRUGS (6)
  1. REVLIMID [Suspect]
  2. REVLIMID [Suspect]
  3. REVLIMID [Suspect]
     Indication: MULTIPLE MYELOMA
     Dosage: 25 MG, DAILY X 21 DAYS, PO, 25 MG, DAILY X 14 DAYS, PO, 7.5 MG, 1 IN 2 D, PO 5 MG, 1 IN 2 D, PO.
     Route: 048
     Dates: start: 20110601
  4. REVLIMID [Suspect]
     Indication: MULTIPLE MYELOMA
     Dosage: 25 MG, DAILY X 21 DAYS, PO, 25 MG, DAILY X 14 DAYS, PO, 7.5 MG, 1 IN 2 D, PO 5 MG, 1 IN 2 D, PO.
     Route: 048
     Dates: start: 20100301, end: 20100101
  5. REVLIMID [Suspect]
     Indication: MULTIPLE MYELOMA
     Dosage: 25 MG, DAILY X 21 DAYS, PO, 25 MG, DAILY X 14 DAYS, PO, 7.5 MG, 1 IN 2 D, PO 5 MG, 1 IN 2 D, PO.
     Route: 048
     Dates: start: 20110201, end: 20110507
  6. REVLIMID [Suspect]
     Indication: MULTIPLE MYELOMA
     Dosage: 25 MG, DAILY X 21 DAYS, PO, 25 MG, DAILY X 14 DAYS, PO, 7.5 MG, 1 IN 2 D, PO 5 MG, 1 IN 2 D, PO.
     Route: 048
     Dates: start: 20110101, end: 20110101

REACTIONS (3)
  - PLATELET COUNT DECREASED [None]
  - DIARRHOEA [None]
  - WHITE BLOOD CELL COUNT DECREASED [None]
